FAERS Safety Report 16440944 (Version 1)
Quarter: 2019Q2

REPORT INFORMATION
  Report Type: Spontaneous
  Country: TR (occurrence: TR)
  Receive Date: 20190617
  Receipt Date: 20190617
  Transmission Date: 20190711
  Serious: Yes (Life-Threatening)
  Sender: FDA-Public Use
  Company Number: TR-PFIZER INC-2019254395

PATIENT
  Age: 20 Year
  Sex: Male

DRUGS (4)
  1. MYCOPHENOLATE MOFETIL. [Suspect]
     Active Substance: MYCOPHENOLATE MOFETIL
     Indication: PULMONARY ALVEOLAR HAEMORRHAGE
     Dosage: 2 G, DAILY
  2. METHYLPREDNISOLONE ACETATE. [Suspect]
     Active Substance: METHYLPREDNISOLONE ACETATE
     Indication: PULMONARY ALVEOLAR HAEMORRHAGE
     Dosage: 1 G, DAILY (INTRAVENOUS PULSE FOR 3 DAYS)
     Route: 042
  3. CYCLOPHOSPHAMIDE. [Suspect]
     Active Substance: CYCLOPHOSPHAMIDE
     Indication: PULMONARY ALVEOLAR HAEMORRHAGE
     Dosage: 1 G, MONTHLY
  4. DEFLAZACORT [Suspect]
     Active Substance: DEFLAZACORT
     Indication: PULMONARY ALVEOLAR HAEMORRHAGE
     Dosage: 1 MG/KG, DAILY
     Route: 048

REACTIONS (3)
  - Off label use [Recovered/Resolved]
  - Neutropenia [Recovered/Resolved]
  - Product use issue [Recovered/Resolved]
